FAERS Safety Report 6260658-1 (Version None)
Quarter: 2009Q3

REPORT INFORMATION
  Report Type: 
  Country: None (occurrence: None)
  Receive Date: 20090708
  Receipt Date: 20090701
  Transmission Date: 20100115
  Serious: Yes (Other)
  Sender: FDA-Public Use
  Company Number: US-BAYER-200911972BCC

PATIENT
  Sex: Female

DRUGS (1)
  1. ALEVE [Suspect]
     Indication: ARTHRITIS
     Dosage: CONSUMER TOOK ALEVE INTERNALLY FOR YEARS
     Route: 048

REACTIONS (2)
  - GASTRIC ULCER [None]
  - GASTRITIS [None]
